FAERS Safety Report 6202329-3 (Version None)
Quarter: 2009Q2

REPORT INFORMATION
  Report Type: 
  Country: None (occurrence: None)
  Receive Date: 20090526
  Receipt Date: 20090514
  Transmission Date: 20091009
  Serious: Yes (Other)
  Sender: FDA-Public Use
  Company Number: US-PFIZER INC-2005116078

PATIENT
  Sex: Female
  Weight: 61 kg

DRUGS (13)
  1. PROVERA [Suspect]
     Indication: HORMONE REPLACEMENT THERAPY
     Dosage: 5 MG, UNK
     Route: 048
     Dates: start: 19920812, end: 19981022
  2. PROVERA [Suspect]
     Indication: MENOPAUSAL SYMPTOMS
  3. PREMPRO [Suspect]
     Indication: HORMONE REPLACEMENT THERAPY
     Dosage: 0.625/2.5MG
     Dates: start: 19981022, end: 20000208
  4. PREMPRO [Suspect]
     Indication: MENOPAUSAL SYMPTOMS
     Dosage: 0.625/2.5MG
     Dates: start: 20000302, end: 20040321
  5. ESTRACE [Suspect]
     Indication: HORMONE REPLACEMENT THERAPY
     Dosage: 1 MG, UNK
     Dates: start: 19920812, end: 19981022
  6. ESTRACE [Suspect]
     Indication: MENOPAUSAL SYMPTOMS
  7. PREFEST [Suspect]
     Indication: HORMONE REPLACEMENT THERAPY
     Dosage: UNK
     Dates: start: 20000203, end: 20000302
  8. PREFEST [Suspect]
     Indication: MENOPAUSAL SYMPTOMS
  9. ACTIVELLA [Suspect]
     Indication: HORMONE REPLACEMENT THERAPY
     Dosage: 1MG/0.5MG
     Dates: start: 20010321, end: 20011004
  10. ACTIVELLA [Suspect]
     Indication: MENOPAUSAL SYMPTOMS
  11. ESTRADIOL [Suspect]
     Indication: HORMONE REPLACEMENT THERAPY
     Dosage: 1 MG, UNK
     Dates: start: 19980119, end: 19981022
  12. ESTRADIOL [Suspect]
     Indication: MENOPAUSAL SYMPTOMS
  13. FLONASE [Concomitant]
     Indication: HYPERSENSITIVITY
     Dosage: UNK
     Dates: start: 20000101

REACTIONS (1)
  - BREAST CANCER FEMALE [None]
